FAERS Safety Report 17105481 (Version 2)
Quarter: 2020Q1

REPORT INFORMATION
  Report Type: Spontaneous
  Country: DE (occurrence: DE)
  Receive Date: 20191203
  Receipt Date: 20200114
  Transmission Date: 20200409
  Serious: Yes (Other)
  Sender: FDA-Public Use
  Company Number: DE-PFIZER INC-2019521896

PATIENT
  Sex: Male

DRUGS (1)
  1. PANTOZOL [Suspect]
     Active Substance: PANTOPRAZOLE SODIUM
     Indication: PROPHYLAXIS
     Dosage: 80 MG, 1X/DAY
     Route: 065

REACTIONS (12)
  - Nausea [Unknown]
  - Off label use [Unknown]
  - Cachexia [Unknown]
  - Vomiting [Unknown]
  - Vitamin B12 deficiency [Unknown]
  - Abdominal pain [Unknown]
  - Vision blurred [Unknown]
  - Iron deficiency [Unknown]
  - Cognitive disorder [Unknown]
  - Laboratory test abnormal [Unknown]
  - Vitamin D deficiency [Unknown]
  - Product use in unapproved indication [Unknown]

NARRATIVE: CASE EVENT DATE: 2019
